FAERS Safety Report 20467586 (Version 1)
Quarter: 2022Q1

REPORT INFORMATION
  Report Type: Spontaneous
  Country: US (occurrence: US)
  Receive Date: 20220214
  Receipt Date: 20220214
  Transmission Date: 20220424
  Serious: No
  Sender: FDA-Public Use
  Company Number: US-AUROBINDO-AUR-APL-2021-017140

PATIENT
  Sex: Male

DRUGS (4)
  1. FAMOTIDINE [Suspect]
     Active Substance: FAMOTIDINE
     Indication: Urticaria
     Dosage: 20 MILLIGRAM (TAKE 1 TABLET TWICE DAILY FOR 5 DAYS)
     Route: 048
     Dates: start: 20210408
  2. FAMOTIDINE [Suspect]
     Active Substance: FAMOTIDINE
     Indication: Pruritus
  3. PFIZER-BIONTECH COVID-19 VACCINE [Suspect]
     Active Substance: TOZINAMERAN
     Indication: Product used for unknown indication
     Dosage: FIRST DOSE, LEFT ARM
     Route: 065
     Dates: start: 20210405
  4. VALTREX [Concomitant]
     Active Substance: VALACYCLOVIR HYDROCHLORIDE
     Indication: Oral herpes
     Dosage: 1 GRAM TAKES 2 TABLETS WHEN FEELS COLD SORE COMING ON
     Route: 065

REACTIONS (1)
  - Drug ineffective for unapproved indication [Unknown]
